FAERS Safety Report 6687067-5 (Version None)
Quarter: 2010Q2

REPORT INFORMATION
  Report Type: 
  Country: None (occurrence: None)
  Receive Date: 20100419
  Receipt Date: 20100407
  Transmission Date: 20101027
  Serious: Yes (Other)
  Sender: FDA-Public Use
  Company Number: US-PFIZER INC-2010017807

PATIENT
  Sex: Female
  Weight: 54.431 kg

DRUGS (3)
  1. GEODON [Suspect]
     Indication: DEPRESSION
     Dosage: 40 MG DAILY
     Route: 048
     Dates: start: 20100205, end: 20100209
  2. GEODON [Suspect]
     Dosage: 60 MG FOR ONE WEEK
     Route: 048
     Dates: start: 20100101
  3. GEODON [Suspect]
     Dosage: 80 MG, 2X/DAY
     Route: 048
     Dates: start: 20100101

REACTIONS (2)
  - PAIN IN JAW [None]
  - SWOLLEN TONGUE [None]
